FAERS Safety Report 17599305 (Version 1)
Quarter: 2020Q1

REPORT INFORMATION
  Report Type: Spontaneous
  Country: US (occurrence: US)
  Receive Date: 20200330
  Receipt Date: 20200330
  Transmission Date: 20200409
  Serious: Yes (Disabling)
  Sender: FDA-Public Use
  Company Number: None

PATIENT
  Age: 94 Year
  Sex: Male
  Weight: 58.95 kg

DRUGS (3)
  1. JAKAFI [Concomitant]
     Active Substance: RUXOLITINIB
  2. FOLIC ACID. [Suspect]
     Active Substance: FOLIC ACID
  3. VITAMIN B1 [Suspect]
     Active Substance: THIAMINE HYDROCHLORIDE

REACTIONS (3)
  - Somnolence [None]
  - Fatigue [None]
  - Hypersomnia [None]

NARRATIVE: CASE EVENT DATE: 20200130
